FAERS Safety Report 8517517-0 (Version None)
Quarter: 2012Q3

REPORT INFORMATION
  Report Type: 
  Country: None (occurrence: None)
  Receive Date: 20120718
  Receipt Date: 20120709
  Transmission Date: 20120928
  Serious: Yes (Hospitalization)
  Sender: FDA-Public Use
  Company Number: FR-ASTRAZENECA-2012SE46531

PATIENT
  Age: 35 Year
  Sex: Female

DRUGS (4)
  1. PARKINANE LP [Suspect]
     Indication: EXTRAPYRAMIDAL DISORDER
     Route: 048
     Dates: start: 20120201, end: 20120605
  2. QUETIAPINE FUMARATE [Suspect]
     Indication: DEPRESSION
     Route: 048
     Dates: start: 20120201, end: 20120605
  3. PAROXETINE HCL [Suspect]
     Indication: DEPRESSION
     Route: 048
     Dates: start: 20120201, end: 20120605
  4. SULFARLEM S [Suspect]
     Indication: DRY MOUTH
     Route: 048
     Dates: start: 20120201, end: 20120605

REACTIONS (2)
  - HEPATITIS CHOLESTATIC [None]
  - CYTOLYTIC HEPATITIS [None]
